FAERS Safety Report 9081378 (Version 1)
Quarter: 2013Q1

REPORT INFORMATION
  Report Type: Report from Study
  Country: US (occurrence: US)
  Receive Date: 20130130
  Receipt Date: 20130130
  Transmission Date: 20140127
  Serious: No
  Sender: FDA-Public Use
  Company Number: US-ABBOTT-12P-163-0927239-00

PATIENT
  Age: 50 None
  Sex: Female
  Weight: 49.94 kg

DRUGS (16)
  1. HUMIRA 40 MG/0.8 ML PEN [Suspect]
     Indication: RHEUMATOID ARTHRITIS
     Dates: start: 20120205, end: 201204
  2. HUMIRA 40 MG/0.8 ML PEN [Suspect]
     Indication: PSORIASIS
     Dates: start: 201204, end: 20120513
  3. HUMIRA 40 MG/0.8 ML PEN [Suspect]
     Indication: ANKYLOSING SPONDYLITIS
     Dates: start: 20120520, end: 20120601
  4. ADVAIR [Suspect]
     Indication: PRODUCT USED FOR UNKNOWN INDICATION
  5. FLECAINIDE ACETATE [Concomitant]
     Indication: ARRHYTHMIA
  6. FLECAINIDE ACETATE [Concomitant]
     Indication: VENTRICULAR EXTRASYSTOLES
  7. OMEPRAZOLE [Concomitant]
     Indication: PROPHYLAXIS AGAINST GASTROINTESTINAL ULCER
     Dosage: 20 MG DAILY
  8. SIMVASTATIN [Concomitant]
     Indication: BLOOD CHOLESTEROL INCREASED
     Dosage: 40 MG DAILY
  9. TRIAMTERENE/HCTZ [Concomitant]
     Indication: PRODUCT USED FOR UNKNOWN INDICATION
     Dosage: 37.5/25 DAILY
  10. TOPROL [Concomitant]
     Indication: HYPERTENSION
     Dosage: XL 25 MG BID
  11. ESTRADIOL [Concomitant]
     Indication: HORMONE REPLACEMENT THERAPY
     Dosage: 1 MG DAILY
  12. LORAZEPAM [Concomitant]
     Indication: INSOMNIA
     Dosage: 1 MG DAILY
  13. MAXIDEX [Concomitant]
     Indication: FLUID RETENTION
  14. ZOCOR [Concomitant]
     Indication: BLOOD CHOLESTEROL INCREASED
  15. INDOMETHACIN [Concomitant]
     Indication: PRODUCT USED FOR UNKNOWN INDICATION
  16. ALBUTEROL [Concomitant]
     Indication: PRODUCT USED FOR UNKNOWN INDICATION
     Route: 055

REACTIONS (20)
  - Cough [Recovered/Resolved]
  - Cough [Not Recovered/Not Resolved]
  - Cough [Not Recovered/Not Resolved]
  - Sputum purulent [Recovering/Resolving]
  - Acne [Unknown]
  - Fatigue [Not Recovered/Not Resolved]
  - Weight decreased [Not Recovered/Not Resolved]
  - Lymphadenopathy [Not Recovered/Not Resolved]
  - Lymphadenopathy [Not Recovered/Not Resolved]
  - Malaise [Recovering/Resolving]
  - Injection site haemorrhage [Unknown]
  - Oropharyngeal pain [Not Recovered/Not Resolved]
  - Influenza like illness [Not Recovered/Not Resolved]
  - Abdominal pain [Not Recovered/Not Resolved]
  - Abdominal pain upper [Unknown]
  - Lower respiratory tract infection [Recovering/Resolving]
  - Fungal infection [Not Recovered/Not Resolved]
  - Blood urine present [Not Recovered/Not Resolved]
  - Pruritus allergic [Recovering/Resolving]
  - Choking sensation [Recovering/Resolving]
